FAERS Safety Report 9734658 (Version 3)
Quarter: 2014Q1

REPORT INFORMATION
  Report Type: Spontaneous
  Country: US (occurrence: US)
  Receive Date: 20131206
  Receipt Date: 20140117
  Transmission Date: 20141002
  Serious: Yes (Death, Hospitalization, Disabling, Other)
  Sender: FDA-Public Use
  Company Number: US-TEVA-448488USA

PATIENT
  Sex: Female

DRUGS (4)
  1. ALENDRONIC ACID [Suspect]
     Indication: OSTEOPOROSIS
  2. FOSAMAX [Suspect]
     Indication: OSTEOPOROSIS
  3. ACTONEL [Suspect]
  4. BONIVA [Suspect]

REACTIONS (4)
  - Osteonecrosis of jaw [Unknown]
  - Jaw fracture [Unknown]
  - Jaw disorder [Unknown]
  - Death [Fatal]
